FAERS Safety Report 6314875-2 (Version None)
Quarter: 2009Q3

REPORT INFORMATION
  Report Type: 
  Country: None (occurrence: None)
  Receive Date: 20090817
  Receipt Date: 20090811
  Transmission Date: 20100115
  Serious: Yes (Other)
  Sender: FDA-Public Use
  Company Number: 2009SP020069

PATIENT
  Age: 67 Year
  Sex: Female
  Weight: 40 kg

DRUGS (13)
  1. TEMODAL [Suspect]
     Indication: ANAPLASTIC ASTROCYTOMA
     Dosage: 75 MG/M2; QD; PO
     Route: 048
     Dates: start: 20080904, end: 20081020
  2. BAKTAR [Concomitant]
  3. EXCEGRAN [Concomitant]
  4. GASTER D [Concomitant]
  5. MAGMITT [Concomitant]
  6. MEVALOTIN [Concomitant]
  7. DEPAKENE [Concomitant]
  8. DEPAKENE [Concomitant]
  9. ZOFRAN [Concomitant]
  10. TEGRETOL [Concomitant]
  11. MUCOSTA [Concomitant]
  12. PURSENNID [Concomitant]
  13. PHENOBARBITAL TAB [Concomitant]

REACTIONS (6)
  - BRAIN NEOPLASM [None]
  - CONDITION AGGRAVATED [None]
  - DECREASED APPETITE [None]
  - HYPONATRAEMIA [None]
  - PLATELET COUNT DECREASED [None]
  - VOMITING [None]
